FAERS Safety Report 13835258 (Version 1)
Quarter: 2017Q3

REPORT INFORMATION
  Report Type: Spontaneous
  Country: FI (occurrence: FI)
  Receive Date: 20170804
  Receipt Date: 20170804
  Transmission Date: 20171127
  Serious: Yes (Hospitalization)
  Sender: FDA-Public Use
  Company Number: FI-ACCORD-056835

PATIENT
  Age: 51 Year
  Sex: Female

DRUGS (1)
  1. DOCETAXEL ACCORD [Suspect]
     Active Substance: DOCETAXEL
     Indication: BREAST CANCER
     Route: 042
     Dates: start: 20170209, end: 20170302

REACTIONS (7)
  - Pneumonia [Unknown]
  - Neutropenia [Unknown]
  - Face oedema [Unknown]
  - Pharyngeal oedema [Unknown]
  - Viral infection [Unknown]
  - Streptococcal sepsis [Unknown]
  - Sinusitis [Unknown]
